FAERS Safety Report 9377895 (Version 1)
Quarter: 2013Q3

REPORT INFORMATION
  Report Type: Spontaneous
  Country: US (occurrence: US)
  Receive Date: 20130701
  Receipt Date: 20130701
  Transmission Date: 20140515
  Serious: No
  Sender: FDA-Public Use
  Company Number: US-B.I. PHARMACEUTICALS,INC./RIDGEFIELD-2013-BI-18272BP

PATIENT
  Age: 57 Year
  Sex: Male
  Weight: 81 kg

DRUGS (4)
  1. COMBIVENT [Suspect]
     Indication: CHRONIC OBSTRUCTIVE PULMONARY DISEASE
     Dosage: STRENGTH: 20 MCG / 100 MCG; DAILY DOSE: 160MCG/ 800 MCG
     Route: 055
     Dates: start: 20130601, end: 20130605
  2. COMBIVENT [Suspect]
     Dosage: STRENTH: 20 MCG / 100 MCG
     Route: 055
  3. COMBIVENT [Suspect]
     Indication: CHRONIC OBSTRUCTIVE PULMONARY DISEASE
     Dosage: STRENGTH: 18 MCG / 103 MCG; DAILY DOSE: 288 MCG/ 1648 MCG
     Route: 055
     Dates: start: 20130608
  4. COMBIVENT INHALATION AEROSOL [Concomitant]
     Dosage: STRENGHT: 18 MCG/103 MCG, DAILY: 144 MCG/824 MCG
     Route: 055
     Dates: start: 2004, end: 20130601

REACTIONS (4)
  - Dyspnoea [Recovered/Resolved]
  - Prescribed overdose [Recovered/Resolved]
  - Unevaluable event [Not Recovered/Not Resolved]
  - Overdose [Not Recovered/Not Resolved]
